FAERS Safety Report 20519866 (Version 1)
Quarter: 2022Q1

REPORT INFORMATION
  Report Type: Spontaneous
  Country: US (occurrence: None)
  Receive Date: 20220224
  Receipt Date: 20220224
  Transmission Date: 20220424
  Serious: No
  Sender: FDA-Public Use
  Company Number: None

PATIENT
  Age: 62 Year
  Sex: Male
  Weight: 142 kg

DRUGS (11)
  1. REMDESIVIR [Suspect]
     Active Substance: REMDESIVIR
     Indication: COVID-19
     Dosage: FREQUENCY : DAILY;?
     Route: 042
     Dates: start: 20220223
  2. Maalox 15 mL [Concomitant]
     Dates: start: 20220222
  3. ASPIRIN [Concomitant]
     Active Substance: ASPIRIN
     Dates: start: 20220222
  4. ceftriaxone 2 gm [Concomitant]
     Dates: start: 20220222
  5. CYCLOBENZAPRINE [Concomitant]
     Active Substance: CYCLOBENZAPRINE
     Dates: start: 20220222
  6. dexamethasone 10 mg IVP [Concomitant]
     Dates: start: 20220222
  7. enoxaparin 30 mg SQ [Concomitant]
     Dates: start: 20220222
  8. GABAPENTIN [Concomitant]
     Active Substance: GABAPENTIN
     Dates: start: 20220222
  9. ACETAMINOPHEN\HYDROCODONE [Concomitant]
     Active Substance: ACETAMINOPHEN\HYDROCODONE
     Dates: start: 20220222
  10. insulin sliding scale (Novolog) [Concomitant]
     Dates: start: 20220223
  11. VANCOMYCIN [Concomitant]
     Active Substance: VANCOMYCIN
     Dates: start: 20220223

REACTIONS (7)
  - Infusion related reaction [None]
  - Hypersensitivity [None]
  - Erythema [None]
  - Erythema [None]
  - Urticaria [None]
  - Dyspnoea [None]
  - Inspiratory capacity decreased [None]

NARRATIVE: CASE EVENT DATE: 20220224
